FAERS Safety Report 7433803-X (Version None)
Quarter: 2011Q2

REPORT INFORMATION
  Report Type: 
  Country: None (occurrence: None)
  Receive Date: 20110425
  Receipt Date: 20110412
  Transmission Date: 20111010
  Serious: Yes (Hospitalization)
  Sender: FDA-Public Use
  Company Number: US-BIOGENIDEC-2011BI011217

PATIENT
  Age: 38 Year
  Sex: Female

DRUGS (2)
  1. TYSABRI [Suspect]
     Indication: MULTIPLE SCLEROSIS
     Route: 042
     Dates: start: 20101209
  2. TYSABRI [Suspect]
     Route: 042
     Dates: start: 20080311, end: 20100701

REACTIONS (2)
  - SINUSITIS [None]
  - MULTIPLE SCLEROSIS RELAPSE [None]
